FAERS Safety Report 5496944-2 (Version None)
Quarter: 2007Q4

REPORT INFORMATION
  Report Type: 
  Country: None (occurrence: None)
  Receive Date: 20071025
  Receipt Date: 20071022
  Transmission Date: 20080405
  Serious: Yes (Death, Disabling)
  Sender: FDA-Public Use
  Company Number: A0685653A

PATIENT
  Age: 50 Year
  Sex: Male
  Weight: 124.1 kg

DRUGS (17)
  1. AVANDIA [Suspect]
     Dosage: 4MG PER DAY
     Route: 048
     Dates: start: 20060728, end: 20070127
  2. AMOXICILLIN [Concomitant]
     Dates: start: 20060728, end: 20060729
  3. IMODIUM [Concomitant]
     Dosage: 2MG AS REQUIRED
  4. ASPIRIN [Concomitant]
     Dosage: 81MG PER DAY
     Dates: start: 20070104
  5. TRICOR [Concomitant]
     Dosage: 48MG PER DAY
  6. NORVASC [Concomitant]
     Dosage: 5MG PER DAY
     Dates: start: 20061201
  7. GLUCOTROL [Concomitant]
     Dosage: 10MG PER DAY
  8. HALOPERIDOL [Concomitant]
     Dosage: 10MG PER DAY
  9. METFORMIN [Concomitant]
     Dosage: 100MG TWICE PER DAY
  10. PROTONIX [Concomitant]
     Dosage: 40MG PER DAY
  11. SEROQUEL [Concomitant]
     Dosage: 200MG PER DAY
  12. COGENTIN [Concomitant]
  13. DEPAKOTE [Concomitant]
     Dosage: 250MG THREE TIMES PER DAY
  14. DIOVAN [Concomitant]
     Dosage: 240MG PER DAY
     Dates: start: 20061201
  15. PROZAC [Concomitant]
     Dosage: 20MG PER DAY
  16. ISOSORBIDE DINITRATE [Concomitant]
     Dosage: 5MG TWICE PER DAY
     Dates: start: 20070104
  17. NITROGLYCERIN [Concomitant]
     Dosage: .4MG AS REQUIRED
     Dates: start: 20070104

REACTIONS (3)
  - DEATH [None]
  - DRUG INEFFECTIVE [None]
  - TREATMENT NONCOMPLIANCE [None]
